FAERS Safety Report 24896217 (Version 1)
Quarter: 2025Q1

REPORT INFORMATION
  Report Type: Spontaneous
  Country: CA (occurrence: None)
  Receive Date: 20250128
  Receipt Date: 20250128
  Transmission Date: 20250409
  Serious: No
  Sender: FDA-CTU
  Company Number: None

PATIENT
  Age: 47 Year
  Sex: Female
  Weight: 63 kg

DRUGS (4)
  1. ZOLMITRIPTAN [Suspect]
     Active Substance: ZOLMITRIPTAN
     Indication: Product used for unknown indication
     Route: 048
  2. BORON [Concomitant]
     Active Substance: BORON
  3. VITAMIN D3 [Concomitant]
     Active Substance: CHOLECALCIFEROL
  4. LUTEIN [Concomitant]
     Active Substance: LUTEIN

REACTIONS (7)
  - Dry mouth [None]
  - Peripheral coldness [None]
  - Vomiting [None]
  - Epistaxis [None]
  - Nausea [None]
  - Gastrointestinal pain [None]
  - Headache [None]

NARRATIVE: CASE EVENT DATE: 20250125
